FAERS Safety Report 10965157 (Version 1)
Quarter: 2015Q1

REPORT INFORMATION
  Report Type: Report from Study
  Country: JP (occurrence: JP)
  Receive Date: 20150330
  Receipt Date: 20150330
  Transmission Date: 20150721
  Serious: Yes (Other)
  Sender: FDA-Public Use
  Company Number: JP-ROCHE-1555545

PATIENT

DRUGS (4)
  1. INFLIXIMAB [Suspect]
     Active Substance: INFLIXIMAB
     Indication: RHEUMATOID ARTHRITIS
     Route: 065
  2. TOCILIZUMAB [Suspect]
     Active Substance: TOCILIZUMAB
     Indication: RHEUMATOID ARTHRITIS
     Route: 042
  3. ETANERCEPT [Suspect]
     Active Substance: ETANERCEPT
     Indication: RHEUMATOID ARTHRITIS
     Route: 058
  4. ADALIMUMAB [Suspect]
     Active Substance: ADALIMUMAB
     Indication: RHEUMATOID ARTHRITIS
     Dosage: IN COMBINATION WITH MTX
     Route: 065

REACTIONS (10)
  - Skin cancer [Unknown]
  - Tuberculosis [Unknown]
  - Pneumonia [Unknown]
  - Drug ineffective [Unknown]
  - Skin ulcer [Unknown]
  - Dizziness [Unknown]
  - Leukopenia [Unknown]
  - Rash [Unknown]
  - Interstitial lung disease [Unknown]
  - Cell marker increased [Unknown]
